FAERS Safety Report 4381297-3 (Version None)
Quarter: 2004Q2

REPORT INFORMATION
  Report Type: 
  Country: None (occurrence: None)
  Receive Date: 20040617
  Receipt Date: 20040617
  Transmission Date: 20050107
  Serious: No
  Sender: FDA-Public Use
  Company Number: None

PATIENT
  Age: 88 Year
  Sex: Female
  Weight: 61.1 kg

DRUGS (3)
  1. TRAMADOL HCL [Suspect]
     Indication: BACK PAIN
     Dosage: 100 MG PO QID
     Route: 048
     Dates: start: 20040324, end: 20040325
  2. TRAMADOL HCL [Suspect]
     Indication: BACK PAIN
     Dosage: 100 MG PO QID
     Route: 048
     Dates: start: 20040601, end: 20040602
  3. TRAMADOL HCL [Suspect]
     Indication: BACK PAIN
     Dosage: 100 MG PO QID
     Route: 048
     Dates: start: 20040608, end: 20040609

REACTIONS (6)
  - CONFUSIONAL STATE [None]
  - DIZZINESS [None]
  - LETHARGY [None]
  - RESPIRATORY DEPRESSION [None]
  - SOMNOLENCE [None]
  - URINE OUTPUT DECREASED [None]
